FAERS Safety Report 5525137-5 (Version None)
Quarter: 2007Q4

REPORT INFORMATION
  Report Type: 
  Country: None (occurrence: None)
  Receive Date: 20071119
  Receipt Date: 20071119
  Transmission Date: 20080405
  Serious: Yes (Death)
  Sender: FDA-Public Use
  Company Number: None

PATIENT
  Age: 20 Year
  Sex: Male
  Weight: 68.0396 kg

DRUGS (1)
  1. METHADONE HCL [Suspect]
     Dosage: ONCE PO
     Route: 048
     Dates: start: 20060714, end: 20060715

REACTIONS (3)
  - ALCOHOL USE [None]
  - RESPIRATORY ARREST [None]
  - SELF-MEDICATION [None]
